FAERS Safety Report 7296018-4 (Version None)
Quarter: 2011Q1

REPORT INFORMATION
  Report Type: 
  Country: None (occurrence: None)
  Receive Date: 20110211
  Receipt Date: 20110211
  Transmission Date: 20110831
  Serious: Yes (Life-Threatening, Disabling, Other)
  Sender: FDA-Public Use
  Company Number: None

PATIENT
  Sex: Female
  Weight: 81.6475 kg

DRUGS (1)
  1. ZETIA [Suspect]
     Indication: BLOOD CHOLESTEROL ABNORMAL
     Dosage: 10 MG QD P.O
     Route: 048
     Dates: start: 20100101, end: 20110107

REACTIONS (5)
  - MYALGIA [None]
  - NO THERAPEUTIC RESPONSE [None]
  - DEPRESSION [None]
  - MUSCLE CONTRACTIONS INVOLUNTARY [None]
  - DYSPNOEA [None]
